FAERS Safety Report 8142379-3 (Version None)
Quarter: 2012Q1

REPORT INFORMATION
  Report Type: 
  Country: None (occurrence: None)
  Receive Date: 20120216
  Receipt Date: 20120215
  Transmission Date: 20120608
  Serious: Yes (Death)
  Sender: FDA-Public Use
  Company Number: PHHY2011AU100161

PATIENT
  Sex: Female

DRUGS (9)
  1. NEXIUM [Concomitant]
     Indication: GASTROOESOPHAGEAL REFLUX DISEASE
     Dosage: 40 MG, UNK
  2. METOPROLOL TARTRATE [Concomitant]
     Indication: HYPERTENSION
     Dosage: 100 MG, UNK
     Route: 048
  3. VYTORIN [Concomitant]
     Indication: BLOOD CHOLESTEROL INCREASED
     Dosage: CONC: 10/40
  4. METFORMIN HCL [Concomitant]
     Indication: TYPE 2 DIABETES MELLITUS
     Dosage: 500 MG, UNK
     Route: 048
  5. EPHEDRINE [Concomitant]
     Indication: HYPERTENSION
     Dosage: 150 MG, UNK
     Route: 048
  6. ZOLEDRONOC ACID [Suspect]
     Dosage: 5 MG,
     Route: 042
     Dates: start: 20091127
  7. ASPIRIN [Concomitant]
     Dosage: 100 MG, UNK
     Route: 048
  8. ZOLEDRONOC ACID [Suspect]
     Dosage: 5 MG,
     Route: 042
     Dates: start: 20081210
  9. CALCIUM CARBONATE [Concomitant]
     Indication: OSTEOPOROSIS
     Dosage: UNK UKN, BID

REACTIONS (2)
  - MULTIPLE MYELOMA [None]
  - HAEMORRHAGE [None]
